FAERS Safety Report 8772661 (Version 1)
Quarter: 2012Q4

REPORT INFORMATION
  Report Type: 
  Country: US (occurrence: US)
  Receive Date: 20120904
  Receipt Date: 20120904
  Transmission Date: 20130627
  Serious: Yes (Other)
  Sender: FDA-Public Use
  Company Number: US-PFIZER INC-2012215245

PATIENT
  Sex: Male

DRUGS (2)
  1. LIPITOR [Suspect]
     Indication: BLOOD CHOLESTEROL INCREASED
     Dosage: 20 mg, daily
  2. CARAFATE [Concomitant]
     Indication: GASTRIC DISORDER
     Dosage: 1 mg, 4x/day

REACTIONS (1)
  - Cerebral haemorrhage [Recovered/Resolved]
